FAERS Safety Report 23646182 (Version 1)
Quarter: 2024Q1

REPORT INFORMATION
  Report Type: Spontaneous
  Country: CA (occurrence: CA)
  Receive Date: 20240319
  Receipt Date: 20240319
  Transmission Date: 20240409
  Serious: Yes (Death, Other)
  Sender: FDA-Public Use
  Company Number: CA-CELLTRION INC.-2024CA006524

PATIENT

DRUGS (5)
  1. INFLECTRA [Suspect]
     Active Substance: INFLIXIMAB-DYYB
     Indication: Colitis ulcerative
     Dosage: 350 MG
     Route: 042
  2. NORVASC [Suspect]
     Active Substance: AMLODIPINE BESYLATE
     Route: 065
  3. MESALAMINE [Concomitant]
     Active Substance: MESALAMINE
     Route: 065
  4. OPDIVO [Concomitant]
     Active Substance: NIVOLUMAB
     Dosage: 1 DF, 1 EVERY 2 WEEKS
     Route: 065
  5. PREDNISONE [Concomitant]
     Active Substance: PREDNISONE
     Dosage: 1 DF
     Route: 065

REACTIONS (1)
  - Death [Fatal]
